FAERS Safety Report 4314834-5 (Version None)
Quarter: 2004Q1

REPORT INFORMATION
  Report Type: 
  Country: None (occurrence: None)
  Receive Date: 20040310
  Receipt Date: 20040301
  Transmission Date: 20041129
  Serious: Yes (Hospitalization)
  Sender: FDA-Public Use
  Company Number: US-BRISTOL-MYERS SQUIBB COMPANY-12520383

PATIENT
  Age: 71 Year
  Sex: Female
  Weight: 76 kg

DRUGS (3)
  1. COUMADIN [Suspect]
     Indication: ATRIAL FIBRILLATION
     Dosage: DAILY DOSE PER CIOMS
     Route: 048
     Dates: start: 20031001, end: 20031104
  2. RYTHMOL [Concomitant]
     Indication: ATRIAL FIBRILLATION
     Dates: start: 20031001
  3. INFLUENZA VACCINE [Concomitant]
     Dates: start: 20031022, end: 20031022

REACTIONS (2)
  - ATRIAL FIBRILLATION [None]
  - EPISTAXIS [None]
